FAERS Safety Report 8049751-0 (Version None)
Quarter: 2012Q1

REPORT INFORMATION
  Report Type: 
  Country: None (occurrence: None)
  Receive Date: 20120117
  Receipt Date: 20120109
  Transmission Date: 20120608
  Serious: Yes (Hospitalization)
  Sender: FDA-Public Use
  Company Number: US-SANOFI-AVENTIS-2012SA002012

PATIENT
  Age: 73 Year
  Sex: Male

DRUGS (3)
  1. OMEPRAZOLE [Suspect]
     Dates: start: 20110101
  2. PLAVIX [Suspect]
     Route: 048
     Dates: start: 19940101
  3. PROTONIX [Concomitant]
     Dates: start: 20120101

REACTIONS (2)
  - CARDIAC OPERATION [None]
  - STENT PLACEMENT [None]
